FAERS Safety Report 6197145-5 (Version None)
Quarter: 2009Q2

REPORT INFORMATION
  Report Type: 
  Country: None (occurrence: None)
  Receive Date: 20090520
  Receipt Date: 20090512
  Transmission Date: 20091009
  Serious: Yes (Hospitalization)
  Sender: FDA-Public Use
  Company Number: DE-ABBOTT-09P-062-0568105-00

PATIENT
  Sex: Female
  Weight: 50 kg

DRUGS (4)
  1. REDUCTIL [Suspect]
     Indication: SUICIDE ATTEMPT
     Route: 048
     Dates: start: 20090409, end: 20090409
  2. COMBIFLAM [Suspect]
     Indication: SUICIDE ATTEMPT
     Route: 048
     Dates: start: 20090409, end: 20090409
  3. DEPENDAL-M [Suspect]
     Indication: SUICIDE ATTEMPT
     Route: 048
     Dates: start: 20090409, end: 20090409
  4. NOVALGIN [Suspect]
     Indication: SUICIDE ATTEMPT
     Route: 048
     Dates: start: 20090409, end: 20090409

REACTIONS (4)
  - OVERDOSE [None]
  - PSYCHOTIC DISORDER [None]
  - SUICIDE ATTEMPT [None]
  - VOMITING [None]
